FAERS Safety Report 11822095 (Version 1)
Quarter: 2015Q4

REPORT INFORMATION
  Report Type: Spontaneous
  Country: US (occurrence: US)
  Receive Date: 20151210
  Receipt Date: 20151210
  Transmission Date: 20160305
  Serious: No
  Sender: FDA-Public Use
  Company Number: US-JNJFOC-20150219060

PATIENT
  Age: 63 Year
  Sex: Female
  Weight: 54 kg

DRUGS (7)
  1. IMBRUVICA [Suspect]
     Active Substance: IBRUTINIB
     Indication: CHRONIC LYMPHOCYTIC LEUKAEMIA
     Route: 048
     Dates: start: 201407
  2. IMBRUVICA [Suspect]
     Active Substance: IBRUTINIB
     Indication: NODAL MARGINAL ZONE B-CELL LYMPHOMA
     Route: 048
     Dates: start: 20151030
  3. IMBRUVICA [Suspect]
     Active Substance: IBRUTINIB
     Indication: NODAL MARGINAL ZONE B-CELL LYMPHOMA
     Route: 048
     Dates: start: 201407
  4. LEXAPRO [Concomitant]
     Active Substance: ESCITALOPRAM OXALATE
     Indication: ANXIETY
     Route: 048
     Dates: start: 2012
  5. IMBRUVICA [Suspect]
     Active Substance: IBRUTINIB
     Indication: CHRONIC LYMPHOCYTIC LEUKAEMIA
     Route: 048
     Dates: start: 20151030
  6. LEXAPRO [Concomitant]
     Active Substance: ESCITALOPRAM OXALATE
     Indication: DEPRESSION
     Route: 048
     Dates: start: 2012
  7. MARIJUANA [Concomitant]
     Active Substance: CANNABIS SATIVA SUBSP. INDICA TOP
     Indication: PAIN

REACTIONS (7)
  - Petechiae [Unknown]
  - Contusion [Unknown]
  - Neuralgia [Recovered/Resolved]
  - Musculoskeletal pain [Recovered/Resolved]
  - Platelet count decreased [Unknown]
  - Arthralgia [Recovered/Resolved]
  - Pain in extremity [Recovered/Resolved]

NARRATIVE: CASE EVENT DATE: 2014
